FAERS Safety Report 20514630 (Version 1)
Quarter: 2022Q1

REPORT INFORMATION
  Report Type: Spontaneous
  Country: US (occurrence: US)
  Receive Date: 20220224
  Receipt Date: 20220224
  Transmission Date: 20220424
  Serious: Yes (Other)
  Sender: FDA-Public Use
  Company Number: US-TEVA-2022-US-2010050

PATIENT

DRUGS (1)
  1. BUPROPION [Suspect]
     Active Substance: BUPROPION
     Route: 065

REACTIONS (5)
  - Depression suicidal [Unknown]
  - Drowning [Unknown]
  - Suicidal ideation [Unknown]
  - Anger [Unknown]
  - Depressed mood [Unknown]
